FAERS Safety Report 16811271 (Version 9)
Quarter: 2021Q1

REPORT INFORMATION
  Report Type: Report from Study
  Country: FR (occurrence: FR)
  Receive Date: 20190916
  Receipt Date: 20210216
  Transmission Date: 20210419
  Serious: Yes (Death, Hospitalization, Other)
  Sender: FDA-Public Use
  Company Number: FR-INCYTE CORPORATION-2019IN009109

PATIENT

DRUGS (15)
  1. LERCANIDIPINE [Concomitant]
     Active Substance: LERCANIDIPINE
     Indication: HYPERTENSION
     Dosage: 20 MG, UNK
     Route: 048
     Dates: start: 2018
  2. INNOHEP [Concomitant]
     Active Substance: TINZAPARIN SODIUM
     Indication: ARRHYTHMIA
  3. FUROSEMIDE. [Concomitant]
     Active Substance: FUROSEMIDE
     Indication: HYPERTENSION
     Dosage: 20 MG, UNK
     Route: 048
     Dates: start: 201905, end: 20190715
  4. UROREC [Concomitant]
     Active Substance: SILODOSIN
     Indication: RENAL FAILURE
     Dosage: 4 MG, UNK
     Route: 048
     Dates: start: 2019
  5. LERCAN [Concomitant]
     Active Substance: LERCANIDIPINE
     Indication: HYPERTENSION
     Dosage: 10 OT
     Route: 065
     Dates: start: 2018
  6. ALLOPURINOL. [Concomitant]
     Active Substance: ALLOPURINOL
     Dosage: UNK
     Route: 065
     Dates: start: 2014, end: 2019
  7. HYDREA [Concomitant]
     Active Substance: HYDROXYUREA
     Indication: POLYCYTHAEMIA VERA
     Dosage: 500 MG
     Route: 065
     Dates: start: 20130319, end: 201903
  8. INNOHEP [Concomitant]
     Active Substance: TINZAPARIN SODIUM
     Indication: TRANSIENT ISCHAEMIC ATTACK
     Dosage: 0.9 ML
     Route: 058
     Dates: start: 20190621, end: 20190919
  9. FUNGIZONE [Concomitant]
     Active Substance: AMPHOTERICIN B
     Indication: PROPHYLAXIS
     Dosage: 2 MG
     Route: 065
     Dates: start: 20190801
  10. AUGMENTIN [Concomitant]
     Active Substance: AMOXICILLIN\CLAVULANATE POTASSIUM
     Indication: SEPTIC ARTHRITIS STAPHYLOCOCCAL
     Dosage: UNK
     Route: 048
     Dates: start: 20190619, end: 20190621
  11. TAMSULOSINE [TAMSULOSIN HYDROCHLORIDE] [Concomitant]
     Active Substance: TAMSULOSIN HYDROCHLORIDE
     Indication: PROSTATOMEGALY
     Dosage: 0.4 MG
     Route: 065
     Dates: start: 20190712
  12. JAKAVI [Suspect]
     Active Substance: RUXOLITINIB
     Indication: POLYCYTHAEMIA VERA
     Dosage: 20 MG
     Route: 048
     Dates: start: 20190220
  13. ALLOPURINOL. [Concomitant]
     Active Substance: ALLOPURINOL
     Indication: HYPERURICAEMIA
     Dosage: 200 MG
     Route: 065
  14. COTAREG [Concomitant]
     Active Substance: HYDROCHLOROTHIAZIDE\VALSARTAN
     Indication: HYPERTENSION
     Dosage: 160 OT
     Route: 065
     Dates: start: 2013, end: 2019
  15. METOCLOPRAMIDE. [Concomitant]
     Active Substance: METOCLOPRAMIDE
     Indication: NAUSEA
     Dosage: 10
     Route: 065
     Dates: start: 20190712

REACTIONS (27)
  - Neutrophil count increased [Unknown]
  - Red blood cell count decreased [Unknown]
  - Syncope [Fatal]
  - Fall [Recovered/Resolved]
  - Benign prostatic hyperplasia [Recovered/Resolved]
  - Urinary incontinence [Recovered/Resolved]
  - Chalazion [Recovered/Resolved]
  - Blood fibrinogen increased [Unknown]
  - Anal incontinence [Not Recovered/Not Resolved]
  - Constipation [Recovered/Resolved]
  - Femur fracture [Recovered/Resolved with Sequelae]
  - Anaemia [Unknown]
  - Septic arthritis staphylococcal [Recovered/Resolved]
  - Drug ineffective [Not Recovered/Not Resolved]
  - Asthenia [Unknown]
  - Hypertonic bladder [Recovered/Resolved]
  - Haemoglobin decreased [Fatal]
  - Haematoma [Fatal]
  - Insomnia [Unknown]
  - International normalised ratio decreased [Unknown]
  - White blood cell count increased [Unknown]
  - Platelet count increased [Unknown]
  - Blood creatinine increased [Unknown]
  - Haematocrit decreased [Unknown]
  - Shock haemorrhagic [Fatal]
  - Prothrombin time shortened [Unknown]
  - Polycythaemia vera [Fatal]

NARRATIVE: CASE EVENT DATE: 2019
